FAERS Safety Report 4366438-6 (Version None)
Quarter: 2004Q2

REPORT INFORMATION
  Report Type: 
  Country: None (occurrence: None)
  Receive Date: 20040527
  Receipt Date: 20040325
  Transmission Date: 20050107
  Serious: No
  Sender: FDA-Public Use
  Company Number: US-BRISTOL-MYERS SQUIBB COMPANY-12541983

PATIENT
  Age: 72 Year
  Sex: Male
  Weight: 122 kg

DRUGS (2)
  1. ERBITUX [Suspect]
     Indication: COLON CANCER
     Dosage: CYCLE 1: 800 MG ON 11-MAR-2004
     Route: 042
     Dates: start: 20040301, end: 20040301
  2. COUMADIN [Concomitant]
     Indication: PROPHYLAXIS

REACTIONS (2)
  - PRURITUS [None]
  - RASH [None]
